FAERS Safety Report 21649133 (Version 1)
Quarter: 2022Q4

REPORT INFORMATION
  Report Type: Spontaneous
  Country: NL (occurrence: NL)
  Receive Date: 20221128
  Receipt Date: 20221128
  Transmission Date: 20230113
  Serious: Yes (Other)
  Sender: FDA-Public Use
  Company Number: None

PATIENT
  Sex: Male
  Weight: 96 kg

DRUGS (4)
  1. CARBIDOPA\LEVODOPA [Interacting]
     Active Substance: CARBIDOPA\LEVODOPA
     Indication: Parkinson^s disease
     Dosage: TABLET, 100/25 MG (MILLIGRAM)
  2. METOPROLOL [Interacting]
     Active Substance: METOPROLOL
     Indication: Arrhythmia
     Dosage: 1 PIECE PER DAY
     Dates: start: 20220701
  3. PRAMIPEXOLE [Concomitant]
     Active Substance: PRAMIPEXOLE
     Dosage: RETARD 0,26 MG (3 PIECES/DAY)
  4. METHOTREXATE [Concomitant]
     Active Substance: METHOTREXATE
     Dosage: INJECTION FLUID, 2,5 MG/ML (MILLIGRAM PER MILLILITER)

REACTIONS (4)
  - Erectile dysfunction [Recovered/Resolved]
  - Drug titration error [Unknown]
  - Gait inability [Unknown]
  - Drug interaction [Unknown]
